FAERS Safety Report 6913055-7 (Version None)
Quarter: 2010Q3

REPORT INFORMATION
  Report Type: 
  Country: None (occurrence: None)
  Receive Date: 20100806
  Receipt Date: 20100727
  Transmission Date: 20110219
  Serious: Yes (Death, Hospitalization)
  Sender: FDA-Public Use
  Company Number: US-ABBOTT-10P-163-0652364-00

PATIENT
  Sex: Female
  Weight: 54.934 kg

DRUGS (5)
  1. HUMIRA [Suspect]
     Indication: CROHN'S DISEASE
     Dates: start: 20100422, end: 20100531
  2. HUMIRA [Suspect]
     Dosage: INITIAL DOSE
  3. PREVACID [Concomitant]
     Indication: PRODUCT USED FOR UNKNOWN INDICATION
  4. VICODIN [Concomitant]
     Indication: PRODUCT USED FOR UNKNOWN INDICATION
     Dosage: 5/325 EVERY 8 HOURS
  5. PREDNISONE [Concomitant]
     Indication: PRODUCT USED FOR UNKNOWN INDICATION

REACTIONS (5)
  - ARTHROPOD BITE [None]
  - PNEUMONIA [None]
  - PYREXIA [None]
  - SEPSIS [None]
  - SHOCK [None]
